FAERS Safety Report 11990419 (Version 1)
Quarter: 2016Q1

REPORT INFORMATION
  Report Type: Spontaneous
  Country: DE (occurrence: DE)
  Receive Date: 20160202
  Receipt Date: 20160202
  Transmission Date: 20160526
  Serious: Yes (Death, Other)
  Sender: FDA-Public Use
  Company Number: DE-SHIRE-DE201601143

PATIENT
  Sex: Male

DRUGS (1)
  1. REVESTIVE [Suspect]
     Active Substance: TEDUGLUTIDE
     Indication: PRODUCT USED FOR UNKNOWN INDICATION
     Dosage: HALF DOSE, UNK
     Route: 058
     Dates: start: 20150108

REACTIONS (4)
  - Intestinal obstruction [Not Recovered/Not Resolved]
  - Post procedural complication [Not Recovered/Not Resolved]
  - Pulmonary embolism [Fatal]
  - Inadequate diet [Not Recovered/Not Resolved]
